FAERS Safety Report 4841811-8 (Version None)
Quarter: 2005Q4

REPORT INFORMATION
  Report Type: 
  Country: None (occurrence: None)
  Receive Date: 20051130
  Receipt Date: 20050912
  Transmission Date: 20060501
  Serious: Yes (Death)
  Sender: FDA-Public Use
  Company Number: PHEH2005US10119

PATIENT
  Age: 25 Year
  Sex: Female
  Weight: 136.51 kg

DRUGS (1)
  1. ENABLEX [Suspect]
     Indication: MIXED INCONTINENCE
     Dosage: 7.5 MG, QD
     Route: 048
     Dates: start: 20050823

REACTIONS (1)
  - PULMONARY EMBOLISM [None]
